FAERS Safety Report 7256212-5 (Version None)
Quarter: 2011Q1

REPORT INFORMATION
  Report Type: 
  Country: None (occurrence: None)
  Receive Date: 20110129
  Receipt Date: 20100519
  Transmission Date: 20110831
  Serious: No
  Sender: FDA-Public Use
  Company Number: US-ABBOTT-10P-163-0645866-00

PATIENT
  Sex: Female
  Weight: 125.76 kg

DRUGS (13)
  1. CALCIUM [Concomitant]
     Indication: PRODUCT USED FOR UNKNOWN INDICATION
  2. HUMIRA [Suspect]
     Indication: RHEUMATOID ARTHRITIS
     Route: 058
  3. PERCOCET [Concomitant]
     Indication: ARTHRALGIA
     Dosage: 5/235MG PER TABLET EVERY 6 TO 8 HOURS DAILY AS NEEDED
     Route: 048
  4. GLUCOSAMINE CHONDROITIN [Concomitant]
     Indication: ARTHROPATHY
  5. MULTI-VITAMIN [Concomitant]
     Indication: PRODUCT USED FOR UNKNOWN INDICATION
  6. PREDNISONE [Concomitant]
     Indication: RHEUMATOID ARTHRITIS
  7. METHOTREXATE [Concomitant]
     Indication: RHEUMATOID ARTHRITIS
  8. ENZYMES [Concomitant]
     Indication: ENZYME ABNORMALITY
  9. HUMIRA [Suspect]
     Indication: RHEUMATOID ARTHRITIS
     Route: 058
  10. ESTER C [Concomitant]
     Indication: PRODUCT USED FOR UNKNOWN INDICATION
  11. FLAX SEED OIL [Concomitant]
     Indication: PRODUCT USED FOR UNKNOWN INDICATION
  12. HUMIRA [Suspect]
     Route: 058
  13. FISH OIL [Concomitant]
     Indication: PRODUCT USED FOR UNKNOWN INDICATION

REACTIONS (5)
  - DEPRESSION [None]
  - DRUG INEFFECTIVE [None]
  - JOINT SWELLING [None]
  - MUSCULOSKELETAL STIFFNESS [None]
  - PAIN [None]
